FAERS Safety Report 23508757 (Version 1)
Quarter: 2024Q1

REPORT INFORMATION
  Report Type: Report from Study
  Country: US (occurrence: US)
  Receive Date: 20240209
  Receipt Date: 20240209
  Transmission Date: 20240410
  Serious: Yes (Other)
  Sender: FDA-Public Use
  Company Number: US-ABBVIE-5460579

PATIENT
  Sex: Female

DRUGS (1)
  1. HUMIRA [Suspect]
     Active Substance: ADALIMUMAB
     Indication: Rheumatoid arthritis
     Dosage: CITRATE FREE,?FORM STRENGTH: 40 MILLIGRAM
     Route: 058
     Dates: start: 20230331

REACTIONS (5)
  - Chondropathy [Recovering/Resolving]
  - Fibromyalgia [Recovered/Resolved with Sequelae]
  - Rotator cuff syndrome [Unknown]
  - Exostosis [Recovering/Resolving]
  - Osteoporosis [Recovered/Resolved with Sequelae]

NARRATIVE: CASE EVENT DATE: 20230101
